FAERS Safety Report 14148862 (Version 1)
Quarter: 2017Q4

REPORT INFORMATION
  Report Type: Spontaneous
  Country: HR (occurrence: HR)
  Receive Date: 20171101
  Receipt Date: 20171101
  Transmission Date: 20180321
  Serious: Yes (Other)
  Sender: FDA-Public Use
  Company Number: HR-TEVA-819798ROM

PATIENT
  Sex: Male
  Weight: 80 kg

DRUGS (3)
  1. KLAVOCIN [Suspect]
     Active Substance: AMOXICILLIN\CLAVULANIC ACID
     Route: 048
     Dates: start: 20170818, end: 20170818
  2. KETONAL FORTE [Suspect]
     Active Substance: KETOPROFEN
     Route: 048
     Dates: start: 20170818, end: 20170818
  3. NORMABEL [Suspect]
     Active Substance: DIAZEPAM
     Route: 048
     Dates: start: 20170818, end: 20170818

REACTIONS (4)
  - Suicide attempt [Unknown]
  - Intentional overdose [Unknown]
  - Crying [Unknown]
  - Somnolence [Unknown]

NARRATIVE: CASE EVENT DATE: 20170818
